FAERS Safety Report 6788649-2 (Version None)
Quarter: 2010Q2

REPORT INFORMATION
  Report Type: 
  Country: None (occurrence: None)
  Receive Date: 20100623
  Receipt Date: 20080919
  Transmission Date: 20101027
  Serious: No
  Sender: FDA-Public Use
  Company Number: US-PFIZER INC-2008036179

PATIENT
  Sex: Male
  Weight: 97.7 kg

DRUGS (1)
  1. GENOTROPIN [Suspect]
     Indication: HYPOPITUITARISM

REACTIONS (3)
  - DRUG INEFFECTIVE [None]
  - POLLAKIURIA [None]
  - SLEEP DISORDER [None]
